FAERS Safety Report 4918207-3 (Version None)
Quarter: 2006Q1

REPORT INFORMATION
  Report Type: 
  Country: None (occurrence: None)
  Receive Date: 20060215
  Receipt Date: 20060202
  Transmission Date: 20060701
  Serious: Yes (Hospitalization)
  Sender: FDA-Public Use
  Company Number: HQWYE427904NOV05

PATIENT
  Age: 69 Year
  Sex: Male

DRUGS (5)
  1. ANCARON (AMIODARONE, TABLET) [Suspect]
     Indication: CARDIOMYOPATHY
     Dosage: 100 MG OR 200 MG ALTERNATING DAILY ORAL
     Route: 048
     Dates: start: 19930101
  2. ANCARON (AMIODARONE, TABLET) [Suspect]
     Indication: VENTRICULAR TACHYCARDIA
     Dosage: 100 MG OR 200 MG ALTERNATING DAILY ORAL
     Route: 048
     Dates: start: 19930101
  3. ENALAPRIL MALEATE [Concomitant]
  4. CARVEDILOL [Concomitant]
  5. ALLOPURINOL [Concomitant]

REACTIONS (4)
  - ANAEMIA [None]
  - DRUG INEFFECTIVE [None]
  - HYPERTHYROIDISM [None]
  - MULTIPLE MYELOMA [None]
